FAERS Safety Report 5002216-2 (Version None)
Quarter: 2006Q2

REPORT INFORMATION
  Report Type: 
  Country: None (occurrence: None)
  Receive Date: 20060510
  Receipt Date: 20060427
  Transmission Date: 20061013
  Serious: Yes (Hospitalization, Other)
  Sender: FDA-Public Use
  Company Number: 2006057726

PATIENT
  Sex: Female
  Weight: 84.369 kg

DRUGS (16)
  1. NEURONTIN [Suspect]
     Indication: PHANTOM PAIN
     Dosage: 1200 MG (400 MG, 3 IN 1 D)
     Dates: start: 20030101
  2. LANTUS [Suspect]
     Indication: DIABETES MELLITUS INADEQUATE CONTROL
     Dates: start: 20050101, end: 20050101
  3. VALIUM [Concomitant]
  4. LIPITOR [Concomitant]
  5. PEPCID [Concomitant]
  6. DIABETA [Concomitant]
  7. PLAVIX [Concomitant]
  8. LASIX [Concomitant]
  9. SOMA [Concomitant]
  10. FOLIC ACID [Concomitant]
  11. DIOVAN [Concomitant]
  12. VITAMIN B6 (VITAMIN B6) [Concomitant]
  13. VITAMIN B12 [Concomitant]
  14. CORGARD [Concomitant]
  15. HYDROXYZINE [Concomitant]
  16. ASPIRIN [Concomitant]

REACTIONS (21)
  - ANAEMIA [None]
  - BENIGN BREAST NEOPLASM [None]
  - CARDIAC FAILURE CONGESTIVE [None]
  - CATARACT [None]
  - CONDITION AGGRAVATED [None]
  - DIABETES MELLITUS INADEQUATE CONTROL [None]
  - DRUG ERUPTION [None]
  - DRY MOUTH [None]
  - FEELING ABNORMAL [None]
  - FULL BLOOD COUNT DECREASED [None]
  - HAEMORRHAGE [None]
  - IRRITABILITY [None]
  - MOOD SWINGS [None]
  - MUSCULOSKELETAL CHEST PAIN [None]
  - NAUSEA [None]
  - OEDEMA PERIPHERAL [None]
  - PROCEDURAL COMPLICATION [None]
  - SCAB [None]
  - SOMNOLENCE [None]
  - STENT PLACEMENT [None]
  - UNEVALUABLE EVENT [None]
